FAERS Safety Report 6823741-5 (Version None)
Quarter: 2010Q3

REPORT INFORMATION
  Report Type: 
  Country: None (occurrence: None)
  Receive Date: 20100708
  Receipt Date: 20070103
  Transmission Date: 20110219
  Serious: No
  Sender: FDA-Public Use
  Company Number: US-PFIZER INC-2006108121

PATIENT
  Sex: Male
  Weight: 81.19 kg

DRUGS (5)
  1. CHANTIX [Suspect]
     Indication: EX-TOBACCO USER
     Route: 048
     Dates: start: 20060821
  2. FENTANYL [Interacting]
     Indication: BACK PAIN
     Route: 062
     Dates: start: 20010101
  3. MOTRIN [Concomitant]
     Dosage: 2 TO 3 TABLETS DAILY UP TO 3200 MG
     Dates: start: 19780101
  4. PROTONIX [Concomitant]
     Indication: PROPHYLAXIS AGAINST GASTROINTESTINAL ULCER
     Dosage: DAILY
  5. ADVAIR DISKUS 100/50 [Concomitant]

REACTIONS (6)
  - DRUG INTERACTION [None]
  - INSOMNIA [None]
  - LETHARGY [None]
  - NAUSEA [None]
  - VISION BLURRED [None]
  - VOMITING [None]
